FAERS Safety Report 13770117 (Version 1)
Quarter: 2017Q3

REPORT INFORMATION
  Report Type: Spontaneous
  Country: US (occurrence: US)
  Receive Date: 20170719
  Receipt Date: 20170719
  Transmission Date: 20171127
  Serious: No
  Sender: FDA-Public Use
  Company Number: US-009507513-1707USA006554

PATIENT
  Sex: Female

DRUGS (6)
  1. ZEPATIER [Suspect]
     Active Substance: ELBASVIR\GRAZOPREVIR
     Indication: HEPATITIS C
     Dosage: 1 DF (50-100 MG), QD
     Route: 048
     Dates: start: 201705
  2. CYANOCOBALAMIN. [Concomitant]
     Active Substance: CYANOCOBALAMIN
  3. FOLIC ACID. [Concomitant]
     Active Substance: FOLIC ACID
  4. ALBUTEROL. [Concomitant]
     Active Substance: ALBUTEROL
  5. AMLODIPINE BESYLATE. [Concomitant]
     Active Substance: AMLODIPINE BESYLATE
  6. CHLORZOXAZONE. [Concomitant]
     Active Substance: CHLORZOXAZONE

REACTIONS (2)
  - Drug dose omission [Unknown]
  - Constipation [Unknown]

NARRATIVE: CASE EVENT DATE: 2017
